FAERS Safety Report 25120940 (Version 4)
Quarter: 2025Q4

REPORT INFORMATION
  Report Type: Report from Study
  Country: US (occurrence: US)
  Receive Date: 20250326
  Receipt Date: 20251105
  Transmission Date: 20260118
  Serious: Yes (Disabling, Other)
  Sender: ABBVIE
  Company Number: US-ABBVIE-6188364

PATIENT
  Age: 38 Year
  Sex: Female
  Weight: 50 kg

DRUGS (9)
  1. RINVOQ [Suspect]
     Active Substance: UPADACITINIB
     Indication: Ankylosing spondylitis
     Dosage: 15 MILLIGRAM
     Route: 048
     Dates: start: 20220627, end: 20250324
  2. DULOXETINE [Concomitant]
     Active Substance: DULOXETINE
     Indication: Fibromyalgia
     Dosage: FORM STRENGTH: 75 MILLIGRAM? FREQUENCY TEXT: AT NIGHT
  3. DICLOFENAC [Concomitant]
     Active Substance: DICLOFENAC
     Indication: Pain
     Dosage: FREQUENCY TEXT: NOT DAILY ONLY AS NEEDED? START DATE TEXT: 2 YEARS AGO
  4. LYRICA [Suspect]
     Active Substance: PREGABALIN
     Indication: Neuralgia
     Dosage: 50 MG IN THE MORNING AND 200MG AT NIGHT
     Route: 065
     Dates: end: 20250324
  5. LYRICA [Suspect]
     Active Substance: PREGABALIN
     Indication: Neuralgia
     Dosage: 50 MG IN THE MORNING AND 200MG AT NIGHT
     Route: 065
     Dates: end: 20250324
  6. LYRICA [Suspect]
     Active Substance: PREGABALIN
     Indication: Neuralgia
     Dosage: 50 MG IN THE MORNING AND 200MG AT NIGHT
     Route: 065
     Dates: start: 20250327
  7. LYRICA [Suspect]
     Active Substance: PREGABALIN
     Indication: Neuralgia
     Dosage: 50 MG IN THE MORNING AND 200MG AT NIGHT?FORM STRENGTH: 200 MILLIGRAM
     Route: 065
     Dates: start: 20250327
  8. LYRICA [Suspect]
     Active Substance: PREGABALIN
     Indication: Neuralgia
     Dosage: 400 MILLIGRAM
     Route: 065
     Dates: start: 20250325, end: 20250326
  9. TIZANIDINE [Concomitant]
     Active Substance: TIZANIDINE
     Indication: Muscle relaxant therapy
     Dosage: 4 MG

REACTIONS (15)
  - Disability [Not Recovered/Not Resolved]
  - Pruritus [Recovering/Resolving]
  - Burning sensation [Recovering/Resolving]
  - Herpes zoster [Recovering/Resolving]
  - Basal cell carcinoma [Recovering/Resolving]
  - Frequent bowel movements [Recovered/Resolved]
  - Back pain [Unknown]
  - Musculoskeletal stiffness [Not Recovered/Not Resolved]
  - Skin haemorrhage [Recovering/Resolving]
  - Conjunctivitis [Unknown]
  - Papilloma viral infection [Unknown]
  - Spinal disorder [Unknown]
  - Rash papular [Unknown]
  - Posture abnormal [Unknown]
  - Brain fog [Unknown]

NARRATIVE: CASE EVENT DATE: 20250101
